FAERS Safety Report 12080109 (Version 2)
Quarter: 2016Q1

REPORT INFORMATION
  Report Type: Spontaneous
  Country: GB (occurrence: GB)
  Receive Date: 20160216
  Receipt Date: 20160219
  Transmission Date: 20160526
  Serious: Yes (Other)
  Sender: FDA-Public Use
  Company Number: GB-PFM-GB-2016-0425

PATIENT
  Age: 4 Week
  Sex: Female
  Weight: 3.3 kg

DRUGS (3)
  1. PROPRANOLOL INN [Suspect]
     Active Substance: PROPRANOLOL HYDROCHLORIDE
     Dosage: 0.5 MG/KG, QD (1/DAY), THREE DIVIDED DOSES
     Route: 048
  2. PROPRANOLOL INN [Suspect]
     Active Substance: PROPRANOLOL HYDROCHLORIDE
     Indication: INFANTILE HAEMANGIOMA
     Dosage: 2 MG/KG, QD (1/DAY), 3 INDIVIDUAL DOSES
     Route: 048
  3. PREDNISONE. [Suspect]
     Active Substance: PREDNISONE
     Indication: PRODUCT USED FOR UNKNOWN INDICATION
     Dosage: 1 MG/KG, QD (1/DAY)
     Route: 065

REACTIONS (4)
  - Gastrooesophageal reflux disease [Unknown]
  - Raynaud^s phenomenon [Unknown]
  - Drug interaction [Unknown]
  - Ulcerated haemangioma [Recovered/Resolved]
